FAERS Safety Report 11026948 (Version 2)
Quarter: 2015Q2

REPORT INFORMATION
  Report Type: Spontaneous
  Country: US (occurrence: US)
  Receive Date: 20150414
  Receipt Date: 20150525
  Transmission Date: 20150821
  Serious: No
  Sender: FDA-Public Use
  Company Number: US-JNJFOC-20141211357

PATIENT
  Sex: Female
  Weight: 58.97 kg

DRUGS (6)
  1. ORTHO TRI CYCLEN LO [Suspect]
     Active Substance: ETHINYL ESTRADIOL\NORGESTIMATE
     Indication: MUSCLE SPASMS
     Route: 048
     Dates: start: 2006, end: 2011
  2. ORTHO TRI CYCLEN LO [Suspect]
     Active Substance: ETHINYL ESTRADIOL\NORGESTIMATE
     Indication: MENSTRUATION IRREGULAR
     Route: 048
     Dates: start: 2006, end: 2011
  3. ORTHO TRI CYCLEN LO [Suspect]
     Active Substance: ETHINYL ESTRADIOL\NORGESTIMATE
     Indication: MUSCLE SPASMS
     Route: 048
     Dates: start: 2012
  4. ORTHO TRI CYCLEN LO [Suspect]
     Active Substance: ETHINYL ESTRADIOL\NORGESTIMATE
     Indication: MENSTRUATION IRREGULAR
     Route: 048
     Dates: start: 2012
  5. ORTHO TRI CYCLEN LO [Suspect]
     Active Substance: ETHINYL ESTRADIOL\NORGESTIMATE
     Indication: CONTRACEPTION
     Route: 048
     Dates: start: 2012
  6. ORTHO TRI CYCLEN LO [Suspect]
     Active Substance: ETHINYL ESTRADIOL\NORGESTIMATE
     Indication: CONTRACEPTION
     Route: 048
     Dates: start: 2006, end: 2011

REACTIONS (4)
  - Product use issue [Unknown]
  - Inappropriate schedule of drug administration [Unknown]
  - Vaginal haemorrhage [Not Recovered/Not Resolved]
  - Dysmenorrhoea [Not Recovered/Not Resolved]

NARRATIVE: CASE EVENT DATE: 2006
